FAERS Safety Report 10220786 (Version 1)
Quarter: 2014Q2

REPORT INFORMATION
  Report Type: Spontaneous
  Country: AU (occurrence: AU)
  Receive Date: 20140606
  Receipt Date: 20140606
  Transmission Date: 20141212
  Serious: Yes (Other)
  Sender: FDA-Public Use
  Company Number: AU-AMGEN-AUSSP2014040151

PATIENT
  Age: 36 Year
  Sex: Female

DRUGS (1)
  1. VECTIBIX [Suspect]
     Indication: PRODUCT USED FOR UNKNOWN INDICATION
     Dosage: UNK
     Route: 065
     Dates: start: 201405

REACTIONS (5)
  - Skin toxicity [Unknown]
  - Rash [Unknown]
  - Back pain [Unknown]
  - Oropharyngeal pain [Unknown]
  - Chest pain [Unknown]
